FAERS Safety Report 9013270 (Version 1)
Quarter: 2013Q1

REPORT INFORMATION
  Report Type: Spontaneous
  Country: US (occurrence: None)
  Receive Date: 20130107
  Receipt Date: 20130107
  Transmission Date: 20140127
  Serious: Yes (Other)
  Sender: FDA-Public Use
  Company Number: None

PATIENT
  Age: 31 Year
  Sex: Male
  Weight: 70.31 kg

DRUGS (2)
  1. MUCINEX DM MAXIMUM STRENGTH [Suspect]
     Indication: COUGH
     Dosage: 1 PILD 1200 MG ONCE ORAL
     Route: 048
     Dates: start: 20121231, end: 20121231
  2. MUCINEX DM MAXIMUM STRENGTH [Suspect]
     Indication: RHINORRHOEA
     Dosage: 1 PILD 1200 MG ONCE ORAL
     Route: 048
     Dates: start: 20121231, end: 20121231

REACTIONS (7)
  - Abdominal pain upper [None]
  - Anxiety [None]
  - Dizziness [None]
  - Pain [None]
  - Restlessness [None]
  - Insomnia [None]
  - Nervousness [None]
